FAERS Safety Report 13108848 (Version 1)
Quarter: 2017Q1

REPORT INFORMATION
  Report Type: Spontaneous
  Country: PE (occurrence: PE)
  Receive Date: 20170112
  Receipt Date: 20170112
  Transmission Date: 20170428
  Serious: Yes (Disabling)
  Sender: FDA-Public Use
  Company Number: PE-GLAXOSMITHKLINE-PE2017GSK001784

PATIENT
  Age: 70 Year
  Sex: Female

DRUGS (1)
  1. SERETIDE [Suspect]
     Active Substance: FLUTICASONE PROPIONATE\SALMETEROL XINAFOATE
     Indication: ASTHMA
     Dosage: 125 UNK, QID
     Route: 055
     Dates: start: 20160805, end: 20161215

REACTIONS (3)
  - Fall [Unknown]
  - Bone fissure [Recovering/Resolving]
  - Joint dislocation [Recovering/Resolving]

NARRATIVE: CASE EVENT DATE: 20161215
